FAERS Safety Report 16985727 (Version 1)
Quarter: 2019Q4

REPORT INFORMATION
  Report Type: Spontaneous
  Country: US (occurrence: US)
  Receive Date: 20191031
  Receipt Date: 20191031
  Transmission Date: 20200122
  Serious: Yes (Life-Threatening)
  Sender: FDA-Public Use
  Company Number: None

PATIENT
  Age: 20 Year
  Sex: Male
  Weight: 72.3 kg

DRUGS (4)
  1. CEFDINIR. [Concomitant]
     Active Substance: CEFDINIR
     Dates: start: 20191030, end: 20191030
  2. ZYRTEC [Concomitant]
     Active Substance: CETIRIZINE HYDROCHLORIDE
     Dates: start: 20190715
  3. ZANTAC [Concomitant]
     Active Substance: RANITIDINE HYDROCHLORIDE
     Dates: start: 20190715
  4. PALYNZIQ [Suspect]
     Active Substance: PEGVALIASE-PQPZ
     Indication: PHENYLKETONURIA
     Route: 058
     Dates: start: 20190715

REACTIONS (10)
  - Myalgia [None]
  - Headache [None]
  - Ear infection [None]
  - Injection site swelling [None]
  - Bronchospasm [None]
  - Feeling hot [None]
  - Confusional state [None]
  - Arthralgia [None]
  - Erythema [None]
  - Tunnel vision [None]

NARRATIVE: CASE EVENT DATE: 20191030
